FAERS Safety Report 11592562 (Version 1)
Quarter: 2015Q4

REPORT INFORMATION
  Report Type: Spontaneous
  Country: US (occurrence: US)
  Receive Date: 20151005
  Receipt Date: 20151005
  Transmission Date: 20160304
  Serious: No
  Sender: FDA-Public Use
  Company Number: US-ENDO PHARMACEUTICALS INC.-2015-000985

PATIENT
  Age: 72 Year
  Sex: Female

DRUGS (3)
  1. BACLOFEN TABLETS 10MG [Suspect]
     Active Substance: BACLOFEN
     Indication: MULTIPLE SCLEROSIS
     Route: 065
     Dates: end: 201505
  2. BACLOFEN TABLETS 10MG [Suspect]
     Active Substance: BACLOFEN
     Route: 065
     Dates: start: 2010
  3. BACLOFEN TABLETS 10MG [Suspect]
     Active Substance: BACLOFEN
     Route: 065
     Dates: start: 1985, end: 2010

REACTIONS (4)
  - Pain [Unknown]
  - Tinnitus [Unknown]
  - Muscle spasms [Unknown]
  - Headache [Unknown]

NARRATIVE: CASE EVENT DATE: 201505
